FAERS Safety Report 8546602 (Version 2)
Quarter: 2012Q4

REPORT INFORMATION
  Report Type: 
  Country: FR (occurrence: FR)
  Receive Date: 20120504
  Receipt Date: 20121108
  Transmission Date: 20130627
  Serious: Yes (Other)
  Sender: FDA-Public Use
  Company Number: FR-JNJFOC-20120413965

PATIENT
  Sex: Female
  Weight: 44 kg

DRUGS (1)
  1. EPITOMAX [Suspect]
     Indication: PARTIAL SEIZURES
     Route: 048
     Dates: start: 20090423, end: 201102

REACTIONS (2)
  - Alopecia areata [Recovered/Resolved]
  - Alopecia [Recovered/Resolved]
